FAERS Safety Report 5719818-8 (Version None)
Quarter: 2008Q2

REPORT INFORMATION
  Report Type: 
  Country: None (occurrence: None)
  Receive Date: 20080428
  Receipt Date: 20080415
  Transmission Date: 20081010
  Serious: No
  Sender: FDA-Public Use
  Company Number: MX-MERCK-0804MEX00006

PATIENT
  Age: 44 Year
  Sex: Male
  Weight: 78 kg

DRUGS (6)
  1. SINGULAIR [Suspect]
     Indication: ASTHMA
     Route: 048
     Dates: start: 20071108
  2. SINGULAIR [Suspect]
     Indication: RHINITIS ALLERGIC
     Route: 048
     Dates: start: 20071108
  3. LORATADINE [Concomitant]
     Indication: ASTHMA
     Route: 048
     Dates: start: 20070101
  4. LORATADINE [Concomitant]
     Indication: RHINITIS ALLERGIC
     Route: 048
     Dates: start: 20070101
  5. MOMETASONE FUROATE [Concomitant]
     Indication: ASTHMA
     Dates: start: 20071108
  6. MOMETASONE FUROATE [Concomitant]
     Indication: RHINITIS ALLERGIC
     Dates: start: 20071108

REACTIONS (2)
  - HYPOGLYCAEMIA [None]
  - SYNCOPE [None]
